FAERS Safety Report 12204776 (Version 1)
Quarter: 2016Q1

REPORT INFORMATION
  Report Type: Spontaneous
  Country: US (occurrence: US)
  Receive Date: 20160323
  Receipt Date: 20160323
  Transmission Date: 20160526
  Serious: No
  Sender: FDA-Public Use
  Company Number: US-MDT-ADR-2016-00478

PATIENT
  Age: 66 Year
  Sex: Male

DRUGS (2)
  1. MORPHINE INTRATHECAL [Suspect]
     Active Substance: MORPHINE
     Dosage: 1.5535 MG/DAY
     Route: 037
  2. LIORESAL [Suspect]
     Active Substance: BACLOFEN
     Indication: PAIN
     Dosage: 46.60 MCG/DAY
     Route: 037

REACTIONS (1)
  - Pain [Recovered/Resolved]

NARRATIVE: CASE EVENT DATE: 20160108
